FAERS Safety Report 19942229 (Version 1)
Quarter: 2021Q4

REPORT INFORMATION
  Report Type: Spontaneous
  Country: US (occurrence: US)
  Receive Date: 20211008
  Receipt Date: 20211008
  Transmission Date: 20220303
  Serious: No
  Sender: FDA-Public Use
  Company Number: None

PATIENT
  Age: 59 Year
  Sex: Female
  Weight: 130.5 kg

DRUGS (11)
  1. CAPECITABINE [Suspect]
     Active Substance: CAPECITABINE
     Indication: Colon cancer
     Dosage: ?          OTHER FREQUENCY:BID FOR 14/21 DAYS;
     Route: 048
     Dates: start: 20210926
  2. ATENOLOL [Concomitant]
     Active Substance: ATENOLOL
  3. FERROUS SULFATE [Concomitant]
     Active Substance: FERROUS SULFATE
  4. LACTOBACILLUS ACIDOPHILUS [Concomitant]
     Active Substance: LACTOBACILLUS ACIDOPHILUS
  5. LEVOCETIRIZINE [Concomitant]
     Active Substance: LEVOCETIRIZINE
  6. Melatonin 10mg [Concomitant]
  7. METFORMIN [Concomitant]
     Active Substance: METFORMIN HYDROCHLORIDE
  8. ZOLMIPTRIPTAN [Concomitant]
     Active Substance: ZOLMITRIPTAN
  9. Zinc 30mg [Concomitant]
  10. Tums 500mg [Concomitant]
  11. Pepcid 20mg [Concomitant]

REACTIONS (1)
  - Nausea [None]

NARRATIVE: CASE EVENT DATE: 20211008
